FAERS Safety Report 17463515 (Version 1)
Quarter: 2020Q1

REPORT INFORMATION
  Report Type: Spontaneous
  Country: MA (occurrence: MA)
  Receive Date: 20200226
  Receipt Date: 20200226
  Transmission Date: 20200409
  Serious: Yes (Hospitalization, Other)
  Sender: FDA-Public Use
  Company Number: MA-GLAXOSMITHKLINE-MA2020GSK031150

PATIENT
  Age: 27 Year
  Sex: Male

DRUGS (1)
  1. ACITRETIN. [Suspect]
     Active Substance: ACITRETIN
     Indication: PUSTULAR PSORIASIS
     Dosage: 25 MG, 1D

REACTIONS (6)
  - Vomiting [Recovering/Resolving]
  - Abdominal pain upper [Recovering/Resolving]
  - Ascites [Recovering/Resolving]
  - Lipase increased [Recovered/Resolved]
  - Pancreatitis acute [Recovering/Resolving]
  - C-reactive protein increased [Recovered/Resolved]
